FAERS Safety Report 9839085 (Version 1)
Quarter: 2014Q1

REPORT INFORMATION
  Report Type: Spontaneous
  Country: US (occurrence: US)
  Receive Date: 20140123
  Receipt Date: 20140123
  Transmission Date: 20141002
  Serious: Yes (Hospitalization, Other)
  Sender: FDA-Public Use
  Company Number: US-ASTRAZENECA-2014SE03933

PATIENT
  Age: 81 Year
  Sex: Male

DRUGS (2)
  1. BRILINTA [Suspect]
     Route: 048
  2. ASPIRIN [Concomitant]
     Dosage: 81 MG

REACTIONS (3)
  - Angina pectoris [Unknown]
  - Pain [Unknown]
  - Device occlusion [Unknown]
